FAERS Safety Report 24674732 (Version 2)
Quarter: 2024Q4

REPORT INFORMATION
  Report Type: Spontaneous
  Country: US (occurrence: US)
  Receive Date: 20241128
  Receipt Date: 20241226
  Transmission Date: 20250115
  Serious: No
  Sender: ABBVIE
  Company Number: US-ABBVIE-6012730

PATIENT
  Age: 68 Year
  Sex: Female
  Weight: 58 kg

DRUGS (2)
  1. HUMIRA [Suspect]
     Active Substance: ADALIMUMAB
     Indication: Crohn^s disease
     Dosage: FORM STRENGTH: 40 MG
     Route: 058
     Dates: start: 202411
  2. HUMIRA [Suspect]
     Active Substance: ADALIMUMAB
     Dosage: FORM STRENGTH: 40 MG
     Route: 058
     Dates: start: 2021, end: 202411

REACTIONS (1)
  - Drug specific antibody present [Not Recovered/Not Resolved]

NARRATIVE: CASE EVENT DATE: 20241001
